FAERS Safety Report 18924788 (Version 1)
Quarter: 2021Q1

REPORT INFORMATION
  Report Type: Report from Study
  Country: BR (occurrence: BR)
  Receive Date: 20210222
  Receipt Date: 20210222
  Transmission Date: 20210420
  Serious: Yes (Life-Threatening, Hospitalization, Other)
  Sender: FDA-Public Use
  Company Number: NVSC2021BR041057

PATIENT
  Age: 76 Year
  Sex: Female

DRUGS (5)
  1. ENTRESTO [Suspect]
     Active Substance: SACUBITRIL\VALSARTAN
     Indication: CARDIAC FAILURE
     Dosage: 2 UNK, Q12H (24/26 MG)
     Route: 065
  2. ALFAEPOETINA HUMANA RECOMBINANTE [Concomitant]
     Indication: RENAL FAILURE
     Dosage: UNK UNK, UNKNOWN (STARTED 2 YEARS AGO)
     Route: 065
  3. NORIPURUM [Concomitant]
     Active Substance: IRON POLYMALTOSE
     Indication: RENAL FAILURE
     Dosage: UNK UNK, UNKNOWN (STARTED 2 YEARS AGO)
     Route: 042
  4. FERROUS SULFATE. [Concomitant]
     Active Substance: FERROUS SULFATE
     Indication: PRODUCT USED FOR UNKNOWN INDICATION
     Dosage: UNK UNK, UNKNOWN
     Route: 065
  5. ENTRESTO [Suspect]
     Active Substance: SACUBITRIL\VALSARTAN
     Dosage: 2 UNK, Q12H (49/51 MG)
     Route: 065

REACTIONS (26)
  - Ventricular tachycardia [Unknown]
  - Arrhythmia [Not Recovered/Not Resolved]
  - Faeces discoloured [Not Recovered/Not Resolved]
  - Back pain [Not Recovered/Not Resolved]
  - Left ventricular enlargement [Unknown]
  - Cardiac disorder [Unknown]
  - Renal disorder [Unknown]
  - Asthenia [Unknown]
  - Drug ineffective [Unknown]
  - Chest pain [Not Recovered/Not Resolved]
  - Decreased appetite [Unknown]
  - Pain [Unknown]
  - Shock [Unknown]
  - Respiration abnormal [Unknown]
  - Heart rate decreased [Unknown]
  - Respiratory arrest [Unknown]
  - Abdominal pain upper [Not Recovered/Not Resolved]
  - Device malfunction [Unknown]
  - Pulse absent [Unknown]
  - Urine output decreased [Unknown]
  - Near death experience [Unknown]
  - Cough [Unknown]
  - Urinary tract infection [Unknown]
  - Haemoglobin decreased [Unknown]
  - Sleep apnoea syndrome [Unknown]
  - Fatigue [Unknown]

NARRATIVE: CASE EVENT DATE: 20210209
